FAERS Safety Report 20063282 (Version 1)
Quarter: 2021Q4

REPORT INFORMATION
  Report Type: Spontaneous
  Country: US (occurrence: None)
  Receive Date: 20211111
  Receipt Date: 20211111
  Transmission Date: 20220303
  Serious: No
  Sender: FDA-Public Use
  Company Number: None

PATIENT
  Sex: Female

DRUGS (13)
  1. IBRANCE [Suspect]
     Active Substance: PALBOCICLIB
     Indication: Breast cancer
     Dosage: FREQUENCY : DAILY;?
     Route: 048
  2. ALLOPURINOL [Concomitant]
     Active Substance: ALLOPURINOL
  3. AMLODIPINE [Concomitant]
     Active Substance: AMLODIPINE BESYLATE
  4. CALCIUM [Concomitant]
     Active Substance: CALCIUM
  5. COLCHICINE [Concomitant]
     Active Substance: COLCHICINE
  6. DIAZEPAM [Concomitant]
     Active Substance: DIAZEPAM
  7. LYRICA [Concomitant]
     Active Substance: PREGABALIN
  8. OXYCODONE [Concomitant]
     Active Substance: OXYCODONE
  9. TYLENOL [Concomitant]
     Active Substance: ACETAMINOPHEN
  10. VITAMIN B COMPLEX [Concomitant]
     Active Substance: CYANOCOBALAMIN\DEXPANTHENOL\NIACINAMIDE\PYRIDOXINE HYDROCHLORIDE\RIBOFLAVIN 5^-PHOSPHATE SODIUM\THIA
  11. VITAMIN C [Concomitant]
     Active Substance: ASCORBIC ACID
  12. VITAMIN D3 [Concomitant]
     Active Substance: CHOLECALCIFEROL
  13. WARFARIN [Concomitant]
     Active Substance: WARFARIN

REACTIONS (3)
  - Gallbladder operation [None]
  - Herpes zoster [None]
  - Gout [None]
